FAERS Safety Report 5838531-X (Version None)
Quarter: 2008Q3

REPORT INFORMATION
  Report Type: 
  Country: None (occurrence: None)
  Receive Date: 20080808
  Receipt Date: 20080805
  Transmission Date: 20090109
  Serious: Yes (Other)
  Sender: FDA-Public Use
  Company Number: GB-ASTRAZENECA-2008AC02099

PATIENT
  Age: 54 Year
  Sex: Female

DRUGS (8)
  1. QUETIAPINE FUMARATE [Suspect]
     Indication: MAJOR DEPRESSION
  2. LITHIUM CARBONATE [Suspect]
     Indication: MAJOR DEPRESSION
  3. L-TRYPTOPHAN [Suspect]
     Indication: MAJOR DEPRESSION
  4. THYROXINE [Suspect]
     Indication: MAJOR DEPRESSION
  5. CLOMIPRAMINE HCL [Suspect]
     Indication: MAJOR DEPRESSION
  6. ETOMIDATE [Concomitant]
     Indication: ANAESTHESIA
  7. ETOMIDATE [Concomitant]
  8. SUXAMETHONIUM [Concomitant]
     Indication: ELECTIVE PROCEDURE

REACTIONS (1)
  - STATUS EPILEPTICUS [None]
